FAERS Safety Report 18437491 (Version 1)
Quarter: 2020Q4

REPORT INFORMATION
  Report Type: Report from Study
  Country: BR (occurrence: BR)
  Receive Date: 20201028
  Receipt Date: 20201028
  Transmission Date: 20210114
  Serious: Yes (Hospitalization, Other)
  Sender: FDA-Public Use
  Company Number: PHHY2018BR160540

PATIENT
  Age: 69 Year
  Sex: Male
  Weight: 78.1 kg

DRUGS (12)
  1. XOLAIR [Suspect]
     Active Substance: OMALIZUMAB
     Dosage: 2 DF, QMO
     Route: 058
     Dates: start: 20190118
  2. XOLAIR [Suspect]
     Active Substance: OMALIZUMAB
     Dosage: 2 DF, QMO
     Route: 058
     Dates: start: 20190517
  3. XOLAIR [Suspect]
     Active Substance: OMALIZUMAB
     Dosage: 2 DF, QMO
     Route: 058
     Dates: start: 20190621, end: 20190621
  4. DIOVAN [Suspect]
     Active Substance: VALSARTAN
     Indication: PRODUCT USED FOR UNKNOWN INDICATION
     Dosage: START: MORE THAN 10 YEARS AGO
     Route: 065
  5. XOLAIR [Suspect]
     Active Substance: OMALIZUMAB
     Indication: CHRONIC SPONTANEOUS URTICARIA
     Dosage: 300 MG, QMO
     Route: 058
     Dates: start: 20180622
  6. XOLAIR [Suspect]
     Active Substance: OMALIZUMAB
     Dosage: 2 DF, QMO
     Route: 065
     Dates: start: 201806, end: 201907
  7. CONCOR [Concomitant]
     Active Substance: BISOPROLOL FUMARATE
     Indication: PRODUCT USED FOR UNKNOWN INDICATION
     Dosage: START: MORE THAN 10 YEARS AGO
     Route: 065
  8. XOLAIR [Suspect]
     Active Substance: OMALIZUMAB
     Dosage: 2 DF, QMO
     Route: 058
     Dates: start: 20190423
  9. XOLAIR [Suspect]
     Active Substance: OMALIZUMAB
     Dosage: 2 DF, QMO
     Route: 058
     Dates: start: 20190319
  10. XOLAIR [Suspect]
     Active Substance: OMALIZUMAB
     Dosage: 2 DF, QMO
     Route: 058
  11. LIPLESS [Concomitant]
     Active Substance: CIPROFIBRATE
     Indication: PRODUCT USED FOR UNKNOWN INDICATION
     Dosage: START: (MORE THAN 10 YEARS AGO)
     Route: 065
  12. XOLAIR [Suspect]
     Active Substance: OMALIZUMAB
     Dosage: 2 DF, QMO
     Route: 065
     Dates: start: 201806, end: 201907

REACTIONS (20)
  - Leukocytosis [Unknown]
  - Abdominal infection [Recovered/Resolved]
  - Rash pruritic [Not Recovered/Not Resolved]
  - Pyrexia [Unknown]
  - Abdominal pain lower [Unknown]
  - Pelvic infection [Unknown]
  - Hypersensitivity [Not Recovered/Not Resolved]
  - Venous thrombosis [Recovering/Resolving]
  - Deep vein thrombosis [Unknown]
  - Immunodeficiency [Recovered/Resolved]
  - Rash [Not Recovered/Not Resolved]
  - Tachycardia [Recovering/Resolving]
  - Perineal abscess [Unknown]
  - Urticaria [Not Recovered/Not Resolved]
  - Myositis [Unknown]
  - Thrombosis [Recovered/Resolved]
  - Sensitisation [Recovering/Resolving]
  - Pelvic abscess [Recovering/Resolving]
  - Groin abscess [Unknown]
  - Pruritus [Not Recovered/Not Resolved]

NARRATIVE: CASE EVENT DATE: 201906
